FAERS Safety Report 5106027-9 (Version None)
Quarter: 2006Q3

REPORT INFORMATION
  Report Type: 
  Country: None (occurrence: None)
  Receive Date: 20060915
  Receipt Date: 20060905
  Transmission Date: 20061208
  Serious: Yes (Hospitalization, Other)
  Sender: FDA-Public Use
  Company Number: BR-ABBOTT-06P-020-0343118-00

PATIENT
  Age: 46 Year
  Sex: Male

DRUGS (6)
  1. DEPAKOTE [Suspect]
     Indication: SCHIZOPHRENIA
     Route: 048
     Dates: start: 20060101, end: 20060801
  2. OLANZAPINE [Suspect]
     Indication: SCHIZOPHRENIA
     Route: 048
  3. CLONAZEPAM [Concomitant]
     Indication: SCHIZOPHRENIA
     Route: 048
  4. LEVOTHYROXINE SODIUM [Concomitant]
     Indication: HYPOTHYROIDISM
     Route: 048
  5. FLUNITRAZEPAM [Concomitant]
     Indication: SCHIZOPHRENIA
     Dosage: 1 OR 2 MILLIGRAM
     Route: 048
  6. FERRUM [Concomitant]
     Indication: ANAEMIA
     Route: 048

REACTIONS (7)
  - BLOOD ALBUMIN DECREASED [None]
  - ECCHYMOSIS [None]
  - FALL [None]
  - OEDEMA PERIPHERAL [None]
  - PNEUMONIA [None]
  - PROTHROMBIN LEVEL DECREASED [None]
  - WEIGHT DECREASED [None]
